FAERS Safety Report 16138384 (Version 1)
Quarter: 2019Q2

REPORT INFORMATION
  Report Type: Report from Study
  Country: US (occurrence: US)
  Receive Date: 20190401
  Receipt Date: 20190401
  Transmission Date: 20190711
  Serious: Yes (Hospitalization, Other)
  Sender: FDA-Public Use
  Company Number: US-AUROBINDO-AUR-APL-2019-016590

PATIENT

DRUGS (6)
  1. RIVAROXABAN [Concomitant]
     Active Substance: RIVAROXABAN
     Indication: EMBOLISM VENOUS
     Dosage: UNK
     Route: 065
  2. LEUPROLIDE ACETATE. [Concomitant]
     Active Substance: LEUPROLIDE ACETATE
     Indication: PRODUCT USED FOR UNKNOWN INDICATION
     Dosage: TWO 20 IU DOSES, 35 AND 23 HOURS BEFORE RETRIEVAL
     Route: 065
  3. DEXAMETHASONE. [Suspect]
     Active Substance: DEXAMETHASONE
     Indication: NAUSEA
     Dosage: 4 MILLIGRAM, UNK
     Route: 065
  4. HMG [Concomitant]
     Active Substance: GONADOTROPHIN, CHORIONIC
     Indication: PRODUCT USED FOR UNKNOWN INDICATION
     Dosage: 1500 INTERNATIONAL UNIT, UNK
     Route: 065
  5. HYDROMORPHONE [Concomitant]
     Active Substance: HYDROMORPHONE
     Indication: PAIN
     Dosage: 0.25 MILLIGRAM GIVEN TWICE
     Route: 042
  6. FOLLICLE STIMULATING HORMONE, RECOMBINANT [Concomitant]
     Active Substance: FOLLITROPIN
     Indication: PRODUCT USED FOR UNKNOWN INDICATION
     Dosage: 300 INTERNATIONAL UNIT, UNK
     Route: 065

REACTIONS (8)
  - Respiratory failure [Unknown]
  - Haemoglobin decreased [Unknown]
  - Acute chest syndrome [Unknown]
  - Dyspnoea [Unknown]
  - Acute respiratory distress syndrome [Unknown]
  - Hypoxia [Unknown]
  - White blood cell count increased [Unknown]
  - Chest pain [Unknown]
